FAERS Safety Report 7534488-4 (Version None)
Quarter: 2011Q2

REPORT INFORMATION
  Report Type: 
  Country: None (occurrence: None)
  Receive Date: 20110609
  Receipt Date: 20110601
  Transmission Date: 20111010
  Serious: Yes (Hospitalization)
  Sender: FDA-Public Use
  Company Number: PHHO2009JP07360

PATIENT
  Sex: Female
  Weight: 55 kg

DRUGS (22)
  1. PREDNISOLONE [Suspect]
     Dosage: 10 MG / DAY
     Route: 048
     Dates: start: 20090512
  2. BONALON [Concomitant]
  3. EVEROLIMUS [Suspect]
     Indication: RENAL TRANSPLANT
     Dosage: 1.5 MG / DAY
     Route: 048
     Dates: start: 20090422
  4. NEORAL [Suspect]
     Dosage: BETWEEN 350 MG AND 100 MG DAILY
     Route: 048
     Dates: start: 20090422
  5. NEORAL [Suspect]
     Dosage: 50 MG DAILY
     Dates: start: 20100713
  6. PREDNISOLONE [Suspect]
     Indication: RENAL TRANSPLANT
     Dosage: BETWEEN 50 MG AND 5 MG
     Route: 048
     Dates: start: 20090422
  7. HIRUDOID [Concomitant]
  8. HALIZON [Concomitant]
  9. NEORAL [Suspect]
     Dosage: 200 MG / DAY
     Route: 048
     Dates: start: 20090519
  10. DENOSINE [Suspect]
     Dosage: 250 MG DAILY
     Route: 042
     Dates: start: 20090612
  11. DENOSINE [Suspect]
     Dosage: 200 MG DAILY
     Dates: start: 20090614, end: 20090618
  12. DAIKENTYUTO [Concomitant]
     Indication: CONSTIPATION
  13. SIMULECT [Suspect]
     Dosage: 20 MG (DAY 4)
     Route: 042
     Dates: start: 20090425, end: 20090425
  14. SULFAMETHOXAZOLE [Concomitant]
     Indication: INFECTION PROPHYLAXIS
  15. NEO-MINOPHAGEN C [Concomitant]
  16. IMMUNE GLOBULIN INTRAVENOUS (HUMAN) [Concomitant]
     Indication: INFECTION PROPHYLAXIS
  17. PROTECADIN [Concomitant]
  18. SELBEX [Concomitant]
  19. SOLDEM 1 [Concomitant]
  20. NEORAL [Suspect]
     Indication: RENAL TRANSPLANT
     Dosage: 350 MG DAILY
     Dates: start: 20090419, end: 20090420
  21. ISODINE [Concomitant]
  22. SIMULECT [Suspect]
     Indication: RENAL TRANSPLANT
     Dosage: 20 MG (DAY 0)
     Route: 042
     Dates: start: 20090421, end: 20090421

REACTIONS (11)
  - PYREXIA [None]
  - COUGH [None]
  - PNEUMONIA CYTOMEGALOVIRAL [None]
  - CYTOMEGALOVIRUS TEST POSITIVE [None]
  - WHITE BLOOD CELL COUNT DECREASED [None]
  - OVARIAN GERM CELL TERATOMA BENIGN [None]
  - OVARIAN ENLARGEMENT [None]
  - HEADACHE [None]
  - HEPATIC FUNCTION ABNORMAL [None]
  - OVARIAN CYST [None]
  - BONE MARROW FAILURE [None]
